FAERS Safety Report 4659338-5 (Version None)
Quarter: 2005Q2

REPORT INFORMATION
  Report Type: 
  Country: None (occurrence: None)
  Receive Date: 20050502
  Receipt Date: 20050203
  Transmission Date: 20051028
  Serious: No
  Sender: FDA-Public Use
  Company Number: 200418991US

PATIENT
  Age: 77 Year
  Sex: Female

DRUGS (3)
  1. KETEK [Suspect]
     Indication: BRONCHITIS ACUTE
     Dosage: 400 2 TABLETS MG QD PO
     Route: 048
     Dates: start: 20040920, end: 20040921
  2. TAMOXIFEN [Concomitant]
  3. DIOVAN [Concomitant]

REACTIONS (2)
  - DIPLOPIA [None]
  - VISION BLURRED [None]
